FAERS Safety Report 10218816 (Version 2)
Quarter: 2014Q2

REPORT INFORMATION
  Report Type: Spontaneous
  Country: VE (occurrence: None)
  Receive Date: 20140603
  Receipt Date: 20140606
  Transmission Date: 20141212
  Serious: Yes (Hospitalization)
  Sender: FDA-Public Use
  Company Number: 7295049

PATIENT
  Age: 37 Year
  Sex: Female

DRUGS (2)
  1. EUTHYROX [Suspect]
     Indication: HYPOTHYROIDISM
     Route: 048
     Dates: start: 2011, end: 20140519
  2. EUTIROX [Suspect]
     Indication: HYPOTHYROIDISM
     Route: 048
     Dates: start: 20140520, end: 20140520

REACTIONS (2)
  - Hypersensitivity [None]
  - Wrong drug administered [None]
